FAERS Safety Report 21839787 (Version 1)
Quarter: 2023Q1

REPORT INFORMATION
  Report Type: Report from Study
  Country: US (occurrence: US)
  Receive Date: 20230109
  Receipt Date: 20230109
  Transmission Date: 20230418
  Serious: No
  Sender: FDA-Public Use
  Company Number: US-ABBVIE-4263303

PATIENT
  Sex: Female

DRUGS (1)
  1. IMBRUVICA [Suspect]
     Active Substance: IBRUTINIB
     Indication: Chronic leukaemia in remission
     Route: 048

REACTIONS (3)
  - Gastrooesophageal reflux disease [Unknown]
  - Hypertension [Unknown]
  - Blood cholesterol increased [Unknown]
